FAERS Safety Report 26173973 (Version 1)
Quarter: 2025Q4

REPORT INFORMATION
  Report Type: Report from Study
  Country: CA (occurrence: CA)
  Receive Date: 20251218
  Receipt Date: 20251218
  Transmission Date: 20260118
  Serious: Yes (Hospitalization, Other)
  Sender: ALEXION PHARMACEUTICALS
  Company Number: CA-AstraZeneca-CH-00988265A

PATIENT
  Sex: Male

DRUGS (3)
  1. ACALABRUTINIB [Suspect]
     Active Substance: ACALABRUTINIB
     Indication: Mantle cell lymphoma
     Dosage: 100 MILLIGRAM, Q12H
     Route: 061
     Dates: start: 20251028
  2. ACALABRUTINIB [Suspect]
     Active Substance: ACALABRUTINIB
     Dosage: 100 MILLIGRAM
     Route: 061
  3. DILANTIN [Concomitant]
     Active Substance: PHENYTOIN
     Dosage: UNK
     Route: 065

REACTIONS (1)
  - Blood pressure decreased [Unknown]
